FAERS Safety Report 5264773-0 (Version None)
Quarter: 2007Q1

REPORT INFORMATION
  Report Type: 
  Country: None (occurrence: None)
  Receive Date: 20070313
  Receipt Date: 20070223
  Transmission Date: 20070707
  Serious: Yes (Hospitalization)
  Sender: FDA-Public Use
  Company Number: PHNU2006DE03495

PATIENT
  Age: 53 Year
  Sex: Male

DRUGS (2)
  1. ZOMETA [Suspect]
     Indication: METASTASES TO BONE
     Dosage: 4 MG, ONCE/SINGLE
     Route: 042
     Dates: start: 20061010, end: 20061010
  2. ZOMETA [Suspect]
     Dosage: 4 MG, ONCE/SINGLE
     Route: 042
     Dates: start: 20061110, end: 20061110

REACTIONS (5)
  - ANGINA PECTORIS [None]
  - BONE PAIN [None]
  - CHEST PAIN [None]
  - MYOSCLEROSIS [None]
  - PYREXIA [None]
